FAERS Safety Report 15240369 (Version 5)
Quarter: 2019Q2

REPORT INFORMATION
  Report Type: Spontaneous
  Country: JP (occurrence: JP)
  Receive Date: 20180804
  Receipt Date: 20190607
  Transmission Date: 20190711
  Serious: Yes (Hospitalization, Other)
  Sender: FDA-Public Use
  Company Number: JP-AMGEN-JPNSP2018106318

PATIENT
  Age: 45 Year
  Sex: Female

DRUGS (3)
  1. ENBREL [Suspect]
     Active Substance: ETANERCEPT
     Indication: RHEUMATOID ARTHRITIS
     Dosage: 25 MILLIGRAM, QWK
     Route: 058
     Dates: start: 200810, end: 201601
  2. METHOTREXATE. [Concomitant]
     Active Substance: METHOTREXATE
     Dosage: UNK
     Route: 048
     Dates: start: 201607, end: 201612
  3. ENBREL [Suspect]
     Active Substance: ETANERCEPT
     Dosage: 75 MILLIGRAM, QWK
     Route: 058
     Dates: start: 201601, end: 20180601

REACTIONS (5)
  - Palmoplantar pustulosis [Not Recovered/Not Resolved]
  - Therapeutic response decreased [Unknown]
  - Product use issue [Unknown]
  - Off label use [Unknown]
  - SAPHO syndrome [Recovering/Resolving]

NARRATIVE: CASE EVENT DATE: 200810
